FAERS Safety Report 11688785 (Version 1)
Quarter: 2015Q4

REPORT INFORMATION
  Report Type: Report from Study
  Country: MX (occurrence: MX)
  Receive Date: 20151102
  Receipt Date: 20151102
  Transmission Date: 20160304
  Serious: Yes (Hospitalization)
  Sender: FDA-Public Use
  Company Number: MX-ABBVIE-15K-107-1491078-00

PATIENT
  Age: 74 Year
  Sex: Female
  Weight: 60 kg

DRUGS (10)
  1. CALCORT [Concomitant]
     Active Substance: DEFLAZACORT
     Indication: ARTHRITIS
     Dosage: HALF TABLET
     Route: 048
     Dates: start: 2013
  2. CYMBALTA [Concomitant]
     Active Substance: DULOXETINE HYDROCHLORIDE
     Indication: PAIN
     Route: 048
     Dates: start: 2013
  3. PANTOPRAZOLE [Concomitant]
     Active Substance: PANTOPRAZOLE SODIUM
     Indication: GASTRITIS
     Route: 048
     Dates: start: 2013
  4. AZULFIDINE [Concomitant]
     Active Substance: SULFASALAZINE
     Indication: ARTHRITIS
     Route: 048
     Dates: start: 2013
  5. SINERGIX [Concomitant]
     Indication: PAIN
     Route: 048
     Dates: start: 2013
  6. HUMIRA [Suspect]
     Active Substance: ADALIMUMAB
     Indication: RHEUMATOID ARTHRITIS
     Route: 058
     Dates: start: 20140813
  7. FOLIC ACID. [Concomitant]
     Active Substance: FOLIC ACID
     Indication: VITAMIN SUPPLEMENTATION
     Route: 048
     Dates: start: 2013
  8. METHOTREXATE [Concomitant]
     Active Substance: METHOTREXATE
     Indication: ARTHRITIS
     Dosage: 3 TABS ON SATURDAYS, 3 TABS ON SUNDAYS
     Route: 048
     Dates: start: 2013
  9. LYRICA [Concomitant]
     Active Substance: PREGABALIN
     Indication: ANTIDEPRESSANT THERAPY
     Route: 048
     Dates: start: 2013
  10. CALTRATE 600+D [Concomitant]
     Indication: VITAMIN SUPPLEMENTATION
     Route: 048
     Dates: start: 2013

REACTIONS (5)
  - Pyrexia [Recovered/Resolved]
  - Constipation [Recovered/Resolved]
  - Diarrhoea [Recovered/Resolved]
  - Vomiting [Recovered/Resolved]
  - Abdominal pain [Recovered/Resolved]

NARRATIVE: CASE EVENT DATE: 20151020
